FAERS Safety Report 17560757 (Version 5)
Quarter: 2020Q4

REPORT INFORMATION
  Report Type: Spontaneous
  Country: US (occurrence: US)
  Receive Date: 20200319
  Receipt Date: 20201006
  Transmission Date: 20210113
  Serious: Yes (Hospitalization, Other)
  Sender: FDA-Public Use
  Company Number: US-PFIZER INC-2020100939

PATIENT
  Age: 85 Year
  Sex: Female

DRUGS (1)
  1. XELJANZ XR [Suspect]
     Active Substance: TOFACITINIB CITRATE
     Indication: MYELODYSPLASTIC SYNDROME
     Dosage: 11 MG, UNK
     Route: 048

REACTIONS (6)
  - Illness [Unknown]
  - Pain [Unknown]
  - Respiratory tract infection [Unknown]
  - Off label use [Unknown]
  - Product use in unapproved indication [Unknown]
  - Respiratory syncytial virus infection [Recovering/Resolving]
